FAERS Safety Report 9302740 (Version 2)
Quarter: 2013Q3

REPORT INFORMATION
  Report Type: Spontaneous
  Country: BR (occurrence: BR)
  Receive Date: 20130522
  Receipt Date: 20130729
  Transmission Date: 20140515
  Serious: Yes (Other)
  Sender: FDA-Public Use
  Company Number: PHHY2013BR050684

PATIENT
  Age: 58 Year
  Sex: Male

DRUGS (5)
  1. APRESOLIN [Suspect]
     Indication: HYPERTENSION
     Dosage: 2 DF (50 MG), DAILY
     Route: 048
  2. APRESOLIN [Suspect]
     Indication: RENAL FAILURE
  3. AMLODIPINE [Suspect]
  4. ADALAT - SLOW RELEASE [Suspect]
     Indication: HYPERTENSION
     Dosage: 20 MG, DAILY
  5. ADALAT - SLOW RELEASE [Suspect]
     Indication: RENAL FAILURE

REACTIONS (4)
  - Generalised oedema [Not Recovered/Not Resolved]
  - Local swelling [Not Recovered/Not Resolved]
  - Headache [Not Recovered/Not Resolved]
  - Dizziness [Not Recovered/Not Resolved]
